FAERS Safety Report 5454303-2 (Version None)
Quarter: 2007Q3

REPORT INFORMATION
  Report Type: 
  Country: None (occurrence: None)
  Receive Date: 20070917
  Receipt Date: 20070905
  Transmission Date: 20080115
  Serious: Yes (Other)
  Sender: FDA-Public Use
  Company Number: US-PFIZER INC-2007074808

PATIENT
  Sex: Male
  Weight: 66.7 kg

DRUGS (2)
  1. CHANTIX [Suspect]
     Indication: SMOKING CESSATION THERAPY
     Route: 048
  2. LIBRAX [Concomitant]

REACTIONS (2)
  - ARTHRALGIA [None]
  - BACK PAIN [None]
